FAERS Safety Report 7521133-7 (Version None)
Quarter: 2011Q2

REPORT INFORMATION
  Report Type: 
  Country: None (occurrence: None)
  Receive Date: 20110603
  Receipt Date: 20101207
  Transmission Date: 20111010
  Serious: Yes (Life-Threatening, Disabling, Other)
  Sender: FDA-Public Use
  Company Number: UA-BAYER-2010-002409

PATIENT
  Age: 46 Year
  Sex: Female

DRUGS (1)
  1. MIRENA [Suspect]
     Indication: MENORRHAGIA
     Dosage: 20 MCG/24HR, CONTINUOUS
     Route: 015
     Dates: start: 20071026, end: 20100603

REACTIONS (2)
  - LEIOMYOSARCOMA [None]
  - UTERINE ENLARGEMENT [None]
